FAERS Safety Report 18930590 (Version 1)
Quarter: 2021Q1

REPORT INFORMATION
  Report Type: Spontaneous
  Country: FR (occurrence: FR)
  Receive Date: 20210223
  Receipt Date: 20210223
  Transmission Date: 20210420
  Serious: Yes (Hospitalization)
  Sender: FDA-Public Use
  Company Number: FR-ELI_LILLY_AND_COMPANY-FR202102007281

PATIENT
  Age: 65 Year
  Sex: Male

DRUGS (1)
  1. CYRAMZA [Suspect]
     Active Substance: RAMUCIRUMAB
     Indication: HEPATIC CANCER
     Dosage: 1 DOSAGE FORM, EACH 15 DAYS
     Route: 042
     Dates: start: 201902, end: 20210121

REACTIONS (2)
  - Ulcer [Recovering/Resolving]
  - Gastrointestinal haemorrhage [Recovered/Resolved]

NARRATIVE: CASE EVENT DATE: 20210122
